FAERS Safety Report 15765256 (Version 2)
Quarter: 2019Q2

REPORT INFORMATION
  Report Type: Spontaneous
  Country: ES (occurrence: ES)
  Receive Date: 20181227
  Receipt Date: 20190617
  Transmission Date: 20190711
  Serious: Yes (Hospitalization, Other)
  Sender: FDA-Public Use
  Company Number: ES-SA-2018SA389543

PATIENT
  Age: 31 Year
  Sex: Female

DRUGS (2)
  1. FABRAZYME [Suspect]
     Active Substance: AGALSIDASE BETA
     Indication: FABRY^S DISEASE
     Dosage: 70 MG, UNK
     Route: 041
     Dates: start: 20180413
  2. PARACETAMOL [Concomitant]
     Active Substance: ACETAMINOPHEN
     Indication: PREMEDICATION
     Dosage: 1 G, UNK
     Route: 042

REACTIONS (10)
  - Infusion site erythema [Recovered/Resolved]
  - Flushing [Recovered/Resolved]
  - Skin reaction [Recovered/Resolved]
  - Pruritus [Recovered/Resolved]
  - Infusion site rash [Recovered/Resolved]
  - Pruritus generalised [Recovered/Resolved]
  - Infusion site inflammation [Recovered/Resolved]
  - Burning sensation [Recovered/Resolved]
  - Febrile neutropenia [Recovered/Resolved]
  - Swelling face [Recovered/Resolved]

NARRATIVE: CASE EVENT DATE: 20180910
